FAERS Safety Report 5571499-2 (Version None)
Quarter: 2007Q4

REPORT INFORMATION
  Report Type: 
  Country: None (occurrence: None)
  Receive Date: 20071221
  Receipt Date: 20071207
  Transmission Date: 20080405
  Serious: No
  Sender: FDA-Public Use
  Company Number: US-BAYER-US-2006-030039

PATIENT
  Age: 33 Year
  Sex: Female
  Weight: 64 kg

DRUGS (1)
  1. MIRENA [Suspect]
     Indication: CONTRACEPTION
     Route: 015
     Dates: start: 20041221

REACTIONS (6)
  - INTRA-UTERINE CONTRACEPTIVE DEVICE EXPELLED [None]
  - NAUSEA [None]
  - NORMAL NEWBORN [None]
  - PREGNANCY WITH CONTRACEPTIVE DEVICE [None]
  - UMBILICAL CORD VASCULAR DISORDER [None]
  - VAGINAL HAEMORRHAGE [None]
